FAERS Safety Report 9492425 (Version 2)
Quarter: 2013Q4

REPORT INFORMATION
  Report Type: Spontaneous
  Country: JP (occurrence: JP)
  Receive Date: 20130830
  Receipt Date: 20131009
  Transmission Date: 20140711
  Serious: Yes (Disabling, Other)
  Sender: FDA-Public Use
  Company Number: JP-BRISTOL-MYERS SQUIBB COMPANY-19219898

PATIENT
  Age: 45 Year
  Sex: Female
  Weight: 83 kg

DRUGS (7)
  1. TAXOL INJ [Suspect]
     Indication: MALIGNANT PLEURAL EFFUSION
     Route: 042
     Dates: start: 20110830
  2. TAXOL INJ [Suspect]
     Indication: PERICARDITIS
     Route: 042
     Dates: start: 20110830
  3. TAXOL INJ [Suspect]
     Indication: BREAST CANCER RECURRENT
     Route: 042
     Dates: start: 20110830
  4. DEXART [Concomitant]
     Route: 042
     Dates: start: 20110830
  5. FAMOTIDINE [Concomitant]
     Route: 042
     Dates: start: 20130830
  6. POLARAMINE [Concomitant]
     Route: 042
     Dates: start: 20130830
  7. ZOMETA [Concomitant]
     Route: 042
     Dates: start: 20130920

REACTIONS (3)
  - Scleroderma [Not Recovered/Not Resolved]
  - Oedema peripheral [Recovering/Resolving]
  - Panniculitis [Unknown]
